FAERS Safety Report 8776350 (Version 1)
Quarter: 2012Q4

REPORT INFORMATION
  Report Type: 
  Country: US (occurrence: US)
  Receive Date: 20120910
  Receipt Date: 20120910
  Transmission Date: 20130627
  Serious: Yes (Other)
  Sender: FDA-Public Use
  Company Number: US-ASTRAZENECA-2010SE61204

PATIENT
  Age: 40 Year
  Sex: Male
  Weight: 106.6 kg

DRUGS (13)
  1. SEROQUEL [Suspect]
     Indication: BIPOLAR DISORDER
     Route: 048
  2. SEROQUEL [Suspect]
     Indication: POST-TRAUMATIC STRESS DISORDER
     Route: 048
  3. SEROQUEL [Suspect]
     Indication: SOCIAL PHOBIA
     Route: 048
  4. GEODON [Concomitant]
     Indication: AFFECTIVE DISORDER
  5. METFORMIN [Concomitant]
     Indication: DIABETES MELLITUS
  6. AMARYL [Concomitant]
     Indication: DIABETES MELLITUS
  7. PREDNISONE [Concomitant]
     Indication: PUSTULAR PSORIASIS
  8. ZOCOR [Concomitant]
     Indication: BLOOD CHOLESTEROL ABNORMAL
  9. XANEX [Concomitant]
     Indication: PANIC ATTACK
  10. SAFFERNESS [Concomitant]
     Indication: PUSTULAR PSORIASIS
  11. FOLIC ACID [Concomitant]
     Indication: PUSTULAR PSORIASIS
  12. CYCLOSPORINE [Concomitant]
     Indication: PUSTULAR PSORIASIS
  13. METHOTREXATE [Concomitant]
     Indication: PUSTULAR PSORIASIS

REACTIONS (6)
  - Suicidal behaviour [Unknown]
  - Insomnia [Unknown]
  - Diarrhoea [Unknown]
  - Feeling abnormal [Unknown]
  - Irritability [Unknown]
  - Drug dose omission [Unknown]
